FAERS Safety Report 13139166 (Version 6)
Quarter: 2017Q2

REPORT INFORMATION
  Report Type: Report from Study
  Country: US (occurrence: US)
  Receive Date: 20170123
  Receipt Date: 20170421
  Transmission Date: 20170830
  Serious: Yes (Other)
  Sender: FDA-Public Use
  Company Number: US-PFIZER INC-2017026679

PATIENT
  Age: 85 Year
  Sex: Female

DRUGS (3)
  1. IBRANCE [Suspect]
     Active Substance: PALBOCICLIB
     Indication: BREAST CANCER
     Dosage: 125 MG, CYCLIC, (DAILY; 3 WEEKS ON/ 1WEEK OFF)
     Route: 048
     Dates: start: 20161226, end: 20170110
  2. IBRANCE [Suspect]
     Active Substance: PALBOCICLIB
     Dosage: 100 MG, CYCLIC (DAILY; 3 WEEKS ON/1 WEEK OFF)
     Route: 048
     Dates: start: 20170215, end: 20170309
  3. LETROZOLE. [Concomitant]
     Active Substance: LETROZOLE
     Dosage: UNK

REACTIONS (2)
  - Fatigue [Unknown]
  - Bone marrow failure [Not Recovered/Not Resolved]
